FAERS Safety Report 7169491-X (Version None)
Quarter: 2010Q4

REPORT INFORMATION
  Report Type: 
  Country: None (occurrence: None)
  Receive Date: 20101217
  Receipt Date: 20101208
  Transmission Date: 20110411
  Serious: Yes (Hospitalization, Other)
  Sender: FDA-Public Use
  Company Number: US-BIOGENIDEC-2010BI043493

PATIENT
  Age: 43 Year
  Sex: Female

DRUGS (2)
  1. AVONEX [Suspect]
     Indication: MULTIPLE SCLEROSIS
     Route: 030
     Dates: start: 19981201
  2. AVONEX [Suspect]
     Route: 030

REACTIONS (7)
  - ANAEMIA [None]
  - BREAST CANCER [None]
  - CLOSTRIDIAL INFECTION [None]
  - MYOCARDIAL OEDEMA [None]
  - PULMONARY OEDEMA [None]
  - PYREXIA [None]
  - TACHYCARDIA [None]
